FAERS Safety Report 7910294-3 (Version None)
Quarter: 2011Q4

REPORT INFORMATION
  Report Type: 
  Country: None (occurrence: None)
  Receive Date: 20111111
  Receipt Date: 20111031
  Transmission Date: 20120403
  Serious: Yes (Other)
  Sender: FDA-Public Use
  Company Number: US-ENDO PHARMACEUTICALS INC.-PROP20110106

PATIENT
  Sex: Female

DRUGS (1)
  1. PROPOXYPHENE NAPSYLATE W/ ACETAMINOPHEN [Suspect]
     Indication: PAIN
     Dosage: UNK
     Route: 048

REACTIONS (1)
  - SUPRAVENTRICULAR TACHYCARDIA [None]
